FAERS Safety Report 5317296-4 (Version None)
Quarter: 2007Q2

REPORT INFORMATION
  Report Type: 
  Country: None (occurrence: None)
  Receive Date: 20070504
  Receipt Date: 20070423
  Transmission Date: 20071010
  Serious: Yes (Other)
  Sender: FDA-Public Use
  Company Number: US-PFIZER INC-2007033476

PATIENT
  Sex: Female
  Weight: 110.7 kg

DRUGS (2)
  1. LYRICA [Suspect]
     Indication: BACK PAIN
  2. ULTRAM [Concomitant]

REACTIONS (5)
  - DRUG INEFFECTIVE [None]
  - HAEMATURIA [None]
  - MOVEMENT DISORDER [None]
  - NAUSEA [None]
  - RENAL PAIN [None]
